FAERS Safety Report 16450229 (Version 1)
Quarter: 2019Q3

REPORT INFORMATION
  Report Type: Spontaneous
  Country: US (occurrence: US)
  Receive Date: 20190618
  Receipt Date: 20190618
  Transmission Date: 20191004
  Serious: Yes (Hospitalization)
  Sender: FDA-Public Use
  Company Number: None

PATIENT
  Age: 71 Year
  Sex: Female

DRUGS (13)
  1. VITAMIN D3 [Concomitant]
     Active Substance: CHOLECALCIFEROL
  2. DIOVAN [Concomitant]
     Active Substance: VALSARTAN
  3. IBRANCE [Suspect]
     Active Substance: PALBOCICLIB
     Indication: BREAST CANCER
     Route: 048
     Dates: start: 20170607, end: 20190601
  4. ADVAIR HFA [Concomitant]
     Active Substance: FLUTICASONE PROPIONATE\SALMETEROL XINAFOATE
  5. XARELTO [Concomitant]
     Active Substance: RIVAROXABAN
  6. MULTI VITAMIN [Concomitant]
     Active Substance: VITAMINS
  7. LETROZOLE. [Concomitant]
     Active Substance: LETROZOLE
  8. ONDANSETRON [Concomitant]
     Active Substance: ONDANSETRON
  9. FEMARA [Concomitant]
     Active Substance: LETROZOLE
  10. VALSART/HCTZ [Concomitant]
  11. EXEMESTANE. [Concomitant]
     Active Substance: EXEMESTANE
  12. VALSARTAN. [Concomitant]
     Active Substance: VALSARTAN
  13. CENTRUM [Concomitant]
     Active Substance: VITAMINS

REACTIONS (1)
  - Metastases to liver [None]

NARRATIVE: CASE EVENT DATE: 20190606
